FAERS Safety Report 7093384-X (Version None)
Quarter: 2010Q4

REPORT INFORMATION
  Report Type: 
  Country: None (occurrence: None)
  Receive Date: 20101110
  Receipt Date: 20101027
  Transmission Date: 20110411
  Serious: Yes (Disabling, Other)
  Sender: FDA-Public Use
  Company Number: PHHY2010BR73363

PATIENT
  Sex: Female

DRUGS (4)
  1. FORASEQ [Suspect]
  2. CORTICOSTEROID NOS [Concomitant]
  3. SPIRIVA [Concomitant]
  4. CALCIDO [Concomitant]

REACTIONS (9)
  - CHRONIC OBSTRUCTIVE PULMONARY DISEASE [None]
  - FALL [None]
  - FRACTURE [None]
  - HYPOKINESIA [None]
  - INTERNAL FIXATION OF FRACTURE [None]
  - MULTIPLE FRACTURES [None]
  - OSTEOPENIA [None]
  - OSTEOPOROSIS [None]
  - RHEUMATOID ARTHRITIS [None]
